FAERS Safety Report 6239535-8 (Version None)
Quarter: 2009Q2

REPORT INFORMATION
  Report Type: 
  Country: None (occurrence: None)
  Receive Date: 20090622
  Receipt Date: 20090608
  Transmission Date: 20091009
  Serious: Yes (Other)
  Sender: FDA-Public Use
  Company Number: FR-TYCO HEALTHCARE/MALLINCKRODT-T200901169

PATIENT
  Age: 85 Year
  Sex: Male
  Weight: 80 kg

DRUGS (18)
  1. MORPHINE [Suspect]
     Indication: ANALGESIA
     Dosage: 3 MG, BOLUS
  2. MORPHINE [Suspect]
     Dosage: 3 MG, BOLUS
  3. MORPHINE [Suspect]
     Dosage: 4 MG, BOLUS
  4. MORPHINE [Suspect]
     Dosage: 14.4 MG, UNK
  5. TOPALGIC                           /00599202/ [Suspect]
     Indication: ANALGESIA
     Dosage: 100 MG, UNK
  6. DROPERIDOL [Concomitant]
     Indication: ANALGESIA
  7. SALINE                             /00075401/ [Concomitant]
  8. FLECAINIDE ACETATE [Concomitant]
  9. INDAPAMIDE [Concomitant]
  10. DIPYRIDAMOLE [Concomitant]
  11. ATARAX [Concomitant]
     Indication: PREMEDICATION
     Dosage: 100 MG, UNK
  12. SUFENTANIL [Concomitant]
     Indication: GENERAL ANAESTHESIA
     Dosage: 20 UG, UNK
  13. SUFENTANIL [Concomitant]
     Dosage: 50 UG, UNK
  14. HYPNOMIDATE                        /00466802/ [Concomitant]
     Indication: GENERAL ANAESTHESIA
     Dosage: 30 MG, UNK
  15. CISATRACURIUM [Concomitant]
     Indication: GENERAL ANAESTHESIA
     Dosage: 16 MG, UNK
  16. CISATRACURIUM [Concomitant]
     Dosage: 22 MG, BOLUS
  17. ISOFLURANE [Concomitant]
     Indication: GENERAL ANAESTHESIA
  18. ACETAMINOPHEN [Concomitant]
     Indication: ANALGESIA
     Dosage: 1 G, UNK

REACTIONS (5)
  - ACUTE RESPIRATORY DISTRESS SYNDROME [None]
  - BRADYCARDIA [None]
  - MYOCARDIAL ISCHAEMIA [None]
  - OVERDOSE [None]
  - SOMNOLENCE [None]
